FAERS Safety Report 8521731-8 (Version None)
Quarter: 2012Q3

REPORT INFORMATION
  Report Type: 
  Country: None (occurrence: None)
  Receive Date: 20120719
  Receipt Date: 20120713
  Transmission Date: 20120928
  Serious: Yes (Hospitalization, Other)
  Sender: FDA-Public Use
  Company Number: PHHY2012CZ060607

PATIENT
  Age: 42 Year
  Sex: Female

DRUGS (7)
  1. CYCLOPHOSPHAMIDE [Concomitant]
     Dosage: 600 MG/M2, TIW
     Route: 042
  2. BISULEPIN [Suspect]
     Indication: PREMEDICATION
     Dosage: 2 MG
     Route: 042
  3. PACLITAXEL [Suspect]
     Indication: BREAST CANCER
     Dosage: 80 MG/M2, PER WEEK
     Route: 042
  4. ONDANSETRON [Suspect]
     Indication: PREMEDICATION
     Dosage: 8 MG
     Route: 042
  5. RANITIDINE [Suspect]
     Indication: PREMEDICATION
     Dosage: 150 MG
     Route: 042
  6. DEXAMETHASONE [Suspect]
     Indication: PREMEDICATION
     Dosage: 12 MG
     Route: 042
  7. DOXORUBICIN HCL [Concomitant]

REACTIONS (9)
  - HALLUCINATION [None]
  - FEBRILE NEUTROPENIA [None]
  - DISTURBANCE IN ATTENTION [None]
  - TRANSIENT PSYCHOSIS [None]
  - ANXIETY [None]
  - DYSPHEMIA [None]
  - SOMATOFORM DISORDER [None]
  - HALLUCINATIONS, MIXED [None]
  - SUICIDAL IDEATION [None]
